FAERS Safety Report 8567869-0 (Version None)
Quarter: 2012Q3

REPORT INFORMATION
  Report Type: 
  Country: None (occurrence: None)
  Receive Date: 20120803
  Receipt Date: 20120628
  Transmission Date: 20120928
  Serious: No
  Sender: FDA-Public Use
  Company Number: US-BRISTOL-MYERS SQUIBB COMPANY-16726036

PATIENT
  Sex: Male
  Weight: 63 kg

DRUGS (1)
  1. GLUCOVANCE [Suspect]

REACTIONS (1)
  - BLOOD GLUCOSE INCREASED [None]
